FAERS Safety Report 25441621 (Version 1)
Quarter: 2025Q2

REPORT INFORMATION
  Report Type: Spontaneous
  Country: US (occurrence: US)
  Receive Date: 20250616
  Receipt Date: 20250616
  Transmission Date: 20250716
  Serious: No
  Sender: CALLIDITAS THERAPEUTICS AB
  Company Number: US-Calliditas-2025CAL01594

PATIENT
  Age: 52 Year
  Sex: Female

DRUGS (11)
  1. TARPEYO [Suspect]
     Active Substance: BUDESONIDE
     Indication: IgA nephropathy
     Route: 048
     Dates: start: 20250404
  2. ALBUTEROL [Concomitant]
     Active Substance: ALBUTEROL
  3. BREO ELLIPTA [Concomitant]
     Active Substance: FLUTICASONE FUROATE\VILANTEROL TRIFENATATE
  4. CHOLECALCIFEROL [Concomitant]
     Active Substance: CHOLECALCIFEROL
  5. CLOTRIMAZOLE [Concomitant]
     Active Substance: CLOTRIMAZOLE
  6. ESTRADIOL [Concomitant]
     Active Substance: ESTRADIOL
  7. FERROUS SULFATE [Concomitant]
     Active Substance: FERROUS SULFATE
  8. FOLIC ACID [Concomitant]
     Active Substance: FOLIC ACID
  9. LOSARTAN [Concomitant]
     Active Substance: LOSARTAN
  10. TRIAMCINOLONE [Concomitant]
     Active Substance: TRIAMCINOLONE
  11. ZEPBOUND [Concomitant]
     Active Substance: TIRZEPATIDE

REACTIONS (2)
  - Constipation [Not Recovered/Not Resolved]
  - Product dose omission issue [Unknown]

NARRATIVE: CASE EVENT DATE: 20250603
